FAERS Safety Report 7917457-1 (Version None)
Quarter: 2011Q4

REPORT INFORMATION
  Report Type: 
  Country: None (occurrence: None)
  Receive Date: 20111116
  Receipt Date: 20111114
  Transmission Date: 20120403
  Serious: Yes (Hospitalization)
  Sender: FDA-Public Use
  Company Number: PHHO2011IN019078

PATIENT
  Sex: Male
  Weight: 78 kg

DRUGS (6)
  1. VALSARTAN [Suspect]
     Indication: CARDIAC FAILURE CHRONIC
     Dosage: DOUBLE BLINDED
     Route: 048
     Dates: start: 20110409, end: 20111113
  2. ENALAPRIL MALEATE [Suspect]
     Indication: CARDIAC FAILURE CHRONIC
     Dosage: DOUBLE BLINDED
     Route: 048
     Dates: start: 20110409, end: 20111113
  3. DYTOR [Concomitant]
     Indication: CARDIAC FAILURE CONGESTIVE
     Dosage: 75/20 MG
     Dates: start: 20100709, end: 20111113
  4. BLINDED NO TREATMENT RECEIVED [Suspect]
     Indication: CARDIAC FAILURE CHRONIC
     Dosage: DOUBLE BLINDED
     Route: 048
     Dates: start: 20110409, end: 20111113
  5. LANOXIN [Concomitant]
     Indication: CARDIAC FAILURE CONGESTIVE
     Dosage: 0.25 MG, UNK
     Dates: start: 20100605, end: 20111113
  6. FLAVITAN [Concomitant]
     Indication: CARDIAC FAILURE CONGESTIVE
     Dosage: UNK
     Dates: start: 20100705, end: 20111113

REACTIONS (2)
  - VENTRICULAR FIBRILLATION [None]
  - CONCOMITANT DISEASE PROGRESSION [None]
